FAERS Safety Report 9838785 (Version 1)
Quarter: 2014Q1

REPORT INFORMATION
  Report Type: Spontaneous
  Country: US (occurrence: None)
  Receive Date: 20140117
  Receipt Date: 20140117
  Transmission Date: 20141002
  Serious: Yes (Other)
  Sender: FDA-Public Use
  Company Number: None

PATIENT
  Age: 75 Year
  Sex: Male
  Weight: 86 kg

DRUGS (2)
  1. NILUTAMIDE [Suspect]
     Indication: PROSTATE CANCER METASTATIC
     Dosage: 1 PILL
     Route: 048
     Dates: start: 20130330, end: 20131010
  2. ZOLADEX [Concomitant]

REACTIONS (1)
  - Dementia [None]
